FAERS Safety Report 14426174 (Version 1)
Quarter: 2018Q1

REPORT INFORMATION
  Report Type: Spontaneous
  Country: BR (occurrence: BR)
  Receive Date: 20180123
  Receipt Date: 20180123
  Transmission Date: 20180509
  Serious: Yes (Other)
  Sender: FDA-Public Use
  Company Number: BR-PFIZER INC-2018017749

PATIENT
  Age: 61 Year
  Sex: Male

DRUGS (2)
  1. LYRICA [Suspect]
     Active Substance: PREGABALIN
     Indication: LIGAMENT DISORDER
     Dosage: 75 MG, UNK
  2. LYRICA [Suspect]
     Active Substance: PREGABALIN
     Indication: HYPOAESTHESIA

REACTIONS (4)
  - Drug effect incomplete [Unknown]
  - Hypokinesia [Not Recovered/Not Resolved]
  - Inguinal hernia [Unknown]
  - Gait disturbance [Not Recovered/Not Resolved]
